FAERS Safety Report 11032631 (Version 2)
Quarter: 2015Q2

REPORT INFORMATION
  Report Type: Spontaneous
  Country: US (occurrence: US)
  Receive Date: 20150415
  Receipt Date: 20150605
  Transmission Date: 20150821
  Serious: Yes (Hospitalization, Other)
  Sender: FDA-Public Use
  Company Number: US-009507513-1112USA02107

PATIENT
  Sex: Female

DRUGS (2)
  1. FOSAMAX [Suspect]
     Active Substance: ALENDRONATE SODIUM
     Indication: BONE DENSITY DECREASED
     Dosage: 70 MG, QW
     Route: 048
     Dates: start: 20040211, end: 20091218
  2. ALENDRONATE SODIUM. [Suspect]
     Active Substance: ALENDRONATE SODIUM
     Indication: BONE DENSITY DECREASED
     Dosage: 70 MG, QW
     Route: 048
     Dates: start: 20081020, end: 20100327

REACTIONS (22)
  - Intramedullary rod insertion [Unknown]
  - Postoperative fever [Unknown]
  - Bundle branch block right [Unknown]
  - Depression [Unknown]
  - Hypertension [Unknown]
  - Pain in extremity [Unknown]
  - Tremor [Unknown]
  - Angina pectoris [Unknown]
  - Hypercholesterolaemia [Unknown]
  - Left atrial dilatation [Unknown]
  - Pruritus generalised [Unknown]
  - Deep vein thrombosis [Unknown]
  - Cyst removal [Unknown]
  - Gastrooesophageal reflux disease [Unknown]
  - Spinal fusion surgery [Unknown]
  - Mitral valve incompetence [Unknown]
  - Femur fracture [Recovering/Resolving]
  - Spinal fusion surgery [Unknown]
  - Diverticulum [Unknown]
  - Carpal tunnel decompression [Unknown]
  - Appendicectomy [Unknown]
  - Constipation [Unknown]

NARRATIVE: CASE EVENT DATE: 20080416
